FAERS Safety Report 18223595 (Version 2)
Quarter: 2020Q4

REPORT INFORMATION
  Report Type: Spontaneous
  Country: US (occurrence: US)
  Receive Date: 20200902
  Receipt Date: 20201020
  Transmission Date: 20210113
  Serious: No
  Sender: FDA-Public Use
  Company Number: US-PFIZER INC-2020333506

PATIENT
  Age: 5 Year
  Sex: Male
  Weight: 14.51 kg

DRUGS (1)
  1. GENOTROPIN MQ [Suspect]
     Active Substance: SOMATROPIN
     Indication: GROWTH HORMONE DEFICIENCY
     Dosage: 0.8 MG (.8MG INJECTION SIX DAYS A WEEK ON HIS BOTTOM)
     Dates: start: 20200826

REACTIONS (4)
  - Poor quality device used [Recovered/Resolved]
  - Lack of injection site rotation [Unknown]
  - Injection site haemorrhage [Recovered/Resolved]
  - Needle issue [Recovered/Resolved]

NARRATIVE: CASE EVENT DATE: 20200826
